FAERS Safety Report 11355896 (Version 1)
Quarter: 2015Q3

REPORT INFORMATION
  Report Type: Spontaneous
  Country: RU (occurrence: RU)
  Receive Date: 20150807
  Receipt Date: 20150807
  Transmission Date: 20151125
  Serious: Yes (Death)
  Sender: FDA-Public Use
  Company Number: RU-BAYER-2015-391328

PATIENT
  Age: 56 Year
  Sex: Female

DRUGS (6)
  1. INLYTA [Concomitant]
     Active Substance: AXITINIB
     Indication: RENAL CANCER METASTATIC
     Dosage: 3 MG, BID
     Route: 048
     Dates: start: 201405
  2. VALS [Concomitant]
     Dosage: UNK
     Dates: start: 2014
  3. BETALOC [Concomitant]
     Active Substance: METOPROLOL TARTRATE
     Dosage: UNK
     Dates: start: 2014
  4. PHYSIOTENS [Concomitant]
     Active Substance: MOXONIDINE
     Dosage: UNK
     Dates: start: 2014
  5. NEXAVAR [Suspect]
     Active Substance: SORAFENIB
     Indication: RENAL CANCER METASTATIC
     Dosage: UNK
     Route: 048
     Dates: end: 2014
  6. TENOX [TEMAZEPAM] [Concomitant]
     Dosage: UNK
     Dates: start: 2014

REACTIONS (2)
  - Drug ineffective [None]
  - Metastatic renal cell carcinoma [Fatal]
